FAERS Safety Report 18415889 (Version 1)
Quarter: 2020Q4

REPORT INFORMATION
  Report Type: Spontaneous
  Country: GB (occurrence: GB)
  Receive Date: 20201022
  Receipt Date: 20201022
  Transmission Date: 20210114
  Serious: Yes (Hospitalization, Disabling)
  Sender: FDA-Public Use
  Company Number: GB-TEVA-2020-GB-1839983

PATIENT
  Age: 74 Year
  Sex: Male
  Weight: 51.8 kg

DRUGS (28)
  1. CALCIUM CARBONATE. [Concomitant]
     Active Substance: CALCIUM CARBONATE
     Dosage: 3GRAM:WITH COLECALCIFEROL
  2. THIAMINE. [Concomitant]
     Active Substance: THIAMINE
     Dosage: 900 MILLIGRAM DAILY; EVERY MORNING, LUNCH TIME AND TEA TIME.
  3. CYANOCOBALAMIN. [Concomitant]
     Active Substance: CYANOCOBALAMIN
     Dosage: 1 MILLIGRAM DAILY; EVERY MORNING:MODIFIED RELEASE
  4. MESALAZINE [Concomitant]
     Active Substance: MESALAMINE
     Dosage: 4.8 GRAM DAILY; EVERY MORNING.
  5. SALBUTAMOL [Concomitant]
     Active Substance: ALBUTEROL
     Dosage: 200MICROGRAM:INHALER
  6. SODIUM CHLORIDE. [Concomitant]
     Active Substance: SODIUM CHLORIDE
     Dosage: TWICE DAILY VIA NEBULIZER:WITH GENTAMICIN
  7. GENTAMICIN. [Concomitant]
     Active Substance: GENTAMICIN
     Dosage: 80G/2ML TWICE DAILY VIA NEBULIZER:WITH SODIUM CHLORIDE
  8. PARACETAMOL [Concomitant]
     Active Substance: ACETAMINOPHEN
     Dosage: 4 GRAM DAILY;
  9. FINASTERIDE. [Concomitant]
     Active Substance: FINASTERIDE
     Dosage: 5 MILLIGRAM DAILY; EVERY MORNING
  10. ATORVASTATIN [Concomitant]
     Active Substance: ATORVASTATIN
     Dosage: 80 MILLIGRAM DAILY; EVERY NIGHT.
  11. MAGNESIUM ASPARTATE DIHYDRATE [Concomitant]
     Active Substance: MAGNESIUM ASPARTATE DIHYDRATE
     Dosage: 10 MILLIMOL DAILY; EVERY MORNING:POWDER SACHET
  12. ALENDRONIC ACID [Concomitant]
     Active Substance: ALENDRONIC ACID
     Dosage: ON SUNDAY:UNIT DOSE:70MILLIGRAM
  13. LANSOPRAZOLE. [Concomitant]
     Active Substance: LANSOPRAZOLE
     Dosage: 30 MILLIGRAM DAILY; EVERY MORNING
  14. OXELTRA [Concomitant]
     Dosage: MODIFIED RELEASE:10MILLIGRAM
  15. ACETYLSALICYLIC ACID [Concomitant]
     Active Substance: ASPIRIN
     Dosage: 75 MILLIGRAM DAILY; EVERY MORNING
  16. IVABRADINE [Concomitant]
     Active Substance: IVABRADINE
     Dosage: 20 MILLIGRAM DAILY; EVERY MORNING AND TEA TIME.
  17. OXYCODONE [Concomitant]
     Active Substance: OXYCODONE
     Dosage: 5MG/5ML    EVERY 4 HOURS:UNIT DOSE:2.5ML:SOLUTION. PATIENT STATES NOT TAKING
  18. COLECALCIFEROL [Concomitant]
     Active Substance: CHOLECALCIFEROL
     Dosage: 800IU:WITH CALCIUM CARBONATE
  19. MESALAZINE [Concomitant]
     Active Substance: MESALAMINE
     Dosage: 1 DOSAGE FORMS DAILY; 2G/59ML  EVERY MORNING:ENEMA:
  20. CITALOPRAM [Concomitant]
     Active Substance: CITALOPRAM HYDROBROMIDE
     Dosage: 20 MILLIGRAM DAILY; EVERY MORNING
  21. CLOPIDOGREL [Concomitant]
     Active Substance: CLOPIDOGREL BISULFATE
     Dosage: 75 MILLIGRAM DAILY; EVERY MORNING.
  22. TRELEGY ELLIPTA [Concomitant]
     Active Substance: FLUTICASONE FUROATE\UMECLIDINIUM BROMIDE\VILANTEROL TRIFENATATE
     Dosage: 1 DOSAGE FORMS DAILY; 92/55 MCG EVERY MORNING:ELLIPTA INHALER
  23. GLYCERYL TRINITRATE [Concomitant]
     Active Substance: NITROGLYCERIN
     Dosage: SPRAY
  24. CARBOCISTEINE [Concomitant]
     Active Substance: CARBOCYSTEINE
     Dosage: 6750 MILLIGRAM DAILY; EVERY MORNING, LUNCH TIME AND TEA TIME.
  25. PREDNISOLONE. [Suspect]
     Active Substance: PREDNISOLONE
     Indication: CROHN^S DISEASE
     Dosage: 15 MILLIGRAM DAILY;   MORNING - PATIENT WAS HIT AND MISS WITH COMPLIANCE AND ACCURACY OF MEDICATION:
     Route: 048
  26. BUDENOFALK [Concomitant]
     Active Substance: BUDESONIDE
     Dosage: 2 MILLIGRAM DAILY; EVERY NIGHT:FOAM ENEMA
  27. AZITHROMYCIN ANHYDROUS. [Concomitant]
     Active Substance: AZITHROMYCIN ANHYDROUS
     Dosage: ON MONDAY, WEDNESDAY AND FRIDAY:UNIT DOSE:750MILLIGRAM
  28. ISOSORBIDE MONONITRATE. [Concomitant]
     Active Substance: ISOSORBIDE MONONITRATE
     Dosage: 30 MILLIGRAM DAILY; EVERY MORNING.:MODIFIED RELEASE

REACTIONS (2)
  - Aggression [Unknown]
  - Substance-induced psychotic disorder [Recovering/Resolving]

NARRATIVE: CASE EVENT DATE: 20200902
